FAERS Safety Report 5356991-8 (Version None)
Quarter: 2007Q2

REPORT INFORMATION
  Report Type: 
  Country: None (occurrence: None)
  Receive Date: 20070614
  Receipt Date: 20070604
  Transmission Date: 20071010
  Serious: Yes (Hospitalization)
  Sender: FDA-Public Use
  Company Number: GB-AMGEN-UK227800

PATIENT
  Age: 78 Year
  Sex: Male

DRUGS (9)
  1. ARANESP [Suspect]
     Indication: RENAL FAILURE CHRONIC
     Route: 058
     Dates: start: 20070521
  2. BISOPROLOL FUMARATE [Concomitant]
  3. LISINOPRIL [Concomitant]
  4. ISOSORBIDE MONONITRATE [Concomitant]
  5. ATORVASTATIN CALCIUM [Concomitant]
  6. FRUSEMIDE [Concomitant]
  7. ASPIRIN [Concomitant]
  8. CALCIUM CHLORIDE [Concomitant]
  9. HYDRALAZINE HCL [Concomitant]

REACTIONS (1)
  - CONVULSION [None]
